FAERS Safety Report 7643144 (Version 2)
Quarter: 2013Q3

REPORT INFORMATION
  Report Type: Spontaneous
  Country: US (occurrence: US)
  Receive Date: 20101027
  Receipt Date: 20130801
  Transmission Date: 20140515
  Serious: Yes (Other)
  Sender: FDA-Public Use
  Company Number: US-ROCHE-717482

PATIENT
  Sex: Female
  Weight: 44.5 kg

DRUGS (1)
  1. ACCUTANE [Suspect]
     Indication: ACNE
     Route: 065
     Dates: start: 199301, end: 199404

REACTIONS (3)
  - Inflammatory bowel disease [Unknown]
  - Colitis ulcerative [Unknown]
  - Rheumatoid arthritis [Unknown]
